FAERS Safety Report 7700314-3 (Version None)
Quarter: 2011Q3

REPORT INFORMATION
  Report Type: 
  Country: None (occurrence: None)
  Receive Date: 20110822
  Receipt Date: 20110812
  Transmission Date: 20111222
  Serious: Yes (Hospitalization)
  Sender: FDA-Public Use
  Company Number: PHHO2011US12262

PATIENT
  Sex: Male
  Weight: 65.9 kg

DRUGS (3)
  1. AFINITOR [Suspect]
     Indication: CARCINOID TUMOUR
     Dosage: 10 MG, UNK
     Route: 048
     Dates: start: 20070614
  2. SANDOSTATIN LAR [Concomitant]
     Indication: CARCINOID TUMOUR
     Dosage: 30 MG, UNK
     Route: 030
     Dates: end: 20110617
  3. RAD001C [Suspect]
     Indication: CARCINOID TUMOUR
     Dosage: UNK
     Route: 048
     Dates: end: 20110630

REACTIONS (2)
  - NEUTROPENIA [None]
  - SMALL INTESTINAL OBSTRUCTION [None]
